FAERS Safety Report 25491964 (Version 1)
Quarter: 2025Q2

REPORT INFORMATION
  Report Type: Spontaneous
  Country: CH (occurrence: CH)
  Receive Date: 20250630
  Receipt Date: 20250630
  Transmission Date: 20250717
  Serious: Yes (Other)
  Sender: MERCK SHARP & DOHME LLC
  Company Number: None

PATIENT
  Age: 56 Year
  Sex: Female
  Weight: 81.8 kg

DRUGS (10)
  1. NOXAFIL [Suspect]
     Active Substance: POSACONAZOLE
     Dosage: 1 TABLET CONTAINS 100 MG OF POSACONAZOLE, 3 TABLETS WERE ADMINISTERED AT ONCE IN THE MORNING
     Route: 048
     Dates: start: 20240114
  2. ESOMEPRAZOLE [Concomitant]
     Active Substance: ESOMEPRAZOLE
     Route: 048
  3. FILGRASTIM [Concomitant]
     Active Substance: FILGRASTIM
     Dosage: UNTIL NADIR WAS REACHED
     Route: 058
  4. BACTRIM [Concomitant]
     Active Substance: SULFAMETHOXAZOLE\TRIMETHOPRIM
     Route: 048
     Dates: start: 20240113
  5. CYTARABINE [Suspect]
     Active Substance: CYTARABINE
     Route: 040
     Dates: start: 20240110, end: 20240116
  6. MOTILIUM [Concomitant]
     Active Substance: DOMPERIDONE
     Route: 060
     Dates: start: 20240122
  7. LEVOFLOXACIN [Concomitant]
     Active Substance: LEVOFLOXACIN
     Route: 048
     Dates: start: 20240110
  8. DAUNORUBICIN HYDROCHLORIDE [Suspect]
     Active Substance: DAUNORUBICIN HYDROCHLORIDE
     Route: 040
     Dates: start: 20240110, end: 20240112
  9. POTASSIUM BICARBONATE\POTASSIUM CITRATE [Concomitant]
     Active Substance: POTASSIUM BICARBONATE\POTASSIUM CITRATE
     Route: 048
     Dates: start: 20240119
  10. RYDAPT [Concomitant]
     Active Substance: MIDOSTAURIN
     Dosage: 1 TABLET CONTAINS 25 MG OF MIDOSTAURIN, 2 TABLETS WERE ADMINISTERED EVERY 12 HOURS
     Route: 048
     Dates: start: 20240117, end: 20240130

REACTIONS (1)
  - Cardiomyopathy [Recovering/Resolving]

NARRATIVE: CASE EVENT DATE: 20240208
